FAERS Safety Report 5363256-7 (Version None)
Quarter: 2007Q2

REPORT INFORMATION
  Report Type: 
  Country: None (occurrence: None)
  Receive Date: 20070618
  Receipt Date: 20070618
  Transmission Date: 20071010
  Serious: No
  Sender: FDA-Public Use
  Company Number: None

PATIENT
  Age: 51 Year
  Sex: Female

DRUGS (6)
  1. REMIFEMIN [Suspect]
     Dates: start: 20040901, end: 20050901
  2. TRAZODONE HCL [Concomitant]
  3. CELEXA [Concomitant]
  4. LEXAPRO [Concomitant]
  5. LESCOL [Concomitant]
  6. FOSAMAX [Concomitant]

REACTIONS (5)
  - ABDOMINAL PAIN [None]
  - FATIGUE [None]
  - HEPATIC ENZYME INCREASED [None]
  - LIVER INJURY [None]
  - WEIGHT INCREASED [None]
